FAERS Safety Report 4822214-9 (Version None)
Quarter: 2005Q4

REPORT INFORMATION
  Report Type: 
  Country: None (occurrence: None)
  Receive Date: 20051103
  Receipt Date: 20051019
  Transmission Date: 20060501
  Serious: Yes (Other)
  Sender: FDA-Public Use
  Company Number: USA0510111321

PATIENT
  Age: 54 Year
  Sex: Female

DRUGS (1)
  1. HUMULIN L [Suspect]
     Dosage: 45 U/2 DAY
     Dates: start: 19830101

REACTIONS (6)
  - BLINDNESS UNILATERAL [None]
  - BLOOD GLUCOSE DECREASED [None]
  - DIABETIC RETINOPATHY [None]
  - EYE HAEMORRHAGE [None]
  - RETINAL DETACHMENT [None]
  - RETINAL SCAR [None]
